FAERS Safety Report 5109330-1 (Version None)
Quarter: 2006Q3

REPORT INFORMATION
  Report Type: 
  Country: None (occurrence: None)
  Receive Date: 20060920
  Receipt Date: 20060906
  Transmission Date: 20061208
  Serious: Yes (Hospitalization)
  Sender: FDA-Public Use
  Company Number: IT-BRISTOL-MYERS SQUIBB COMPANY-13510508

PATIENT
  Age: 47 Year
  Sex: Female

DRUGS (2)
  1. ERBITUX [Suspect]
     Indication: GASTROINTESTINAL CARCINOMA
     Route: 042
     Dates: start: 20060810, end: 20060810
  2. IRINOTECAN HCL [Suspect]
     Indication: GASTROINTESTINAL CARCINOMA
     Route: 042
     Dates: start: 20060810, end: 20060810

REACTIONS (2)
  - CONSTIPATION [None]
  - VOMITING [None]
